FAERS Safety Report 6862829-X (Version None)
Quarter: 2010Q3

REPORT INFORMATION
  Report Type: 
  Country: None (occurrence: None)
  Receive Date: 20100721
  Receipt Date: 20100630
  Transmission Date: 20110219
  Serious: Yes (Other)
  Sender: FDA-Public Use
  Company Number: A0865410A

PATIENT
  Age: 54 Year
  Sex: Male

DRUGS (1)
  1. AVANDIA [Suspect]
     Dates: start: 20031201, end: 20070601

REACTIONS (4)
  - CARDIAC MURMUR [None]
  - DEPRESSION [None]
  - MYOCARDIAL INFARCTION [None]
  - PALPITATIONS [None]
